FAERS Safety Report 6187086-1 (Version None)
Quarter: 2009Q2

REPORT INFORMATION
  Report Type: 
  Country: None (occurrence: None)
  Receive Date: 20090512
  Receipt Date: 20090430
  Transmission Date: 20091009
  Serious: Yes (Hospitalization)
  Sender: FDA-Public Use
  Company Number: DE-JNJFOC-20090406570

PATIENT
  Sex: Female

DRUGS (6)
  1. REMICADE [Suspect]
     Route: 042
  2. REMICADE [Suspect]
     Route: 042
  3. REMICADE [Suspect]
     Route: 042
  4. REMICADE [Suspect]
     Indication: CROHN'S DISEASE
     Route: 042
  5. AZATHIOPRINE [Concomitant]
     Indication: CROHN'S DISEASE
  6. AZULFIDINE EN-TABS [Concomitant]
     Indication: CROHN'S DISEASE

REACTIONS (4)
  - CHOLECYSTECTOMY [None]
  - HEPATIC STEATOSIS [None]
  - INTESTINAL STENOSIS [None]
  - SUBCUTANEOUS ABSCESS [None]
